FAERS Safety Report 5219485-6 (Version None)
Quarter: 2007Q1

REPORT INFORMATION
  Report Type: 
  Country: None (occurrence: None)
  Receive Date: 20070124
  Receipt Date: 20070124
  Transmission Date: 20070707
  Serious: Yes (Other)
  Sender: FDA-Public Use
  Company Number: None

PATIENT
  Age: 59 Year
  Sex: Male
  Weight: 71.7 kg

DRUGS (9)
  1. METFORMIN HCL [Suspect]
  2. LISINOPRIL [Concomitant]
  3. CLONAZEPAM [Concomitant]
  4. ROSIGLITAZONE MALEATE [Concomitant]
  5. INSULIN NOVOLIN 70/30 (NPH/REG) INJ NOVO [Concomitant]
  6. MELOXICAM [Concomitant]
  7. BOOST DIABETIC LIQUID VANILLA [Concomitant]
  8. FISH OIL [Concomitant]
  9. OMEPRAZOLE [Concomitant]

REACTIONS (1)
  - DIARRHOEA [None]
